FAERS Safety Report 5919941-9 (Version None)
Quarter: 2008Q3

REPORT INFORMATION
  Report Type: 
  Country: None (occurrence: None)
  Receive Date: 20080909
  Receipt Date: 20070814
  Transmission Date: 20090109
  Serious: Yes (Life-Threatening, Other)
  Sender: FDA-Public Use
  Company Number: 163-20785-07061587

PATIENT
  Age: 63 Year
  Sex: Female

DRUGS (4)
  1. THALOMID [Suspect]
     Indication: MULTIPLE MYELOMA
     Dosage: 50 MG, 1 IN 1 D, ORAL ; 100 MG, 2 IN 1 D, ORAL
     Route: 048
     Dates: start: 20040123, end: 20040201
  2. THALOMID [Suspect]
     Indication: MULTIPLE MYELOMA
     Dosage: 50 MG, 1 IN 1 D, ORAL ; 100 MG, 2 IN 1 D, ORAL
     Route: 048
     Dates: start: 20040220, end: 20040409
  3. MELPHALAN (MELPHALAN) [Concomitant]
  4. DEXAMETHASONE TAB [Concomitant]

REACTIONS (5)
  - DYSPNOEA [None]
  - OEDEMA PERIPHERAL [None]
  - PELVIC VENOUS THROMBOSIS [None]
  - PULMONARY EMBOLISM [None]
  - THROMBOPHLEBITIS SUPERFICIAL [None]
